FAERS Safety Report 8075335-4 (Version None)
Quarter: 2012Q1

REPORT INFORMATION
  Report Type: 
  Country: None (occurrence: None)
  Receive Date: 20120127
  Receipt Date: 20111228
  Transmission Date: 20120608
  Serious: No
  Sender: FDA-Public Use
  Company Number: US-MYLANLABS-2011S1025116

PATIENT
  Age: 10 Year
  Sex: Female

DRUGS (2)
  1. CLONIDINE [Suspect]
     Indication: EMOTIONAL DISORDER
     Dosage: QWEEK
     Route: 062
     Dates: start: 20111126, end: 20111129
  2. CLONIDINE [Suspect]
     Indication: ATTENTION DEFICIT/HYPERACTIVITY DISORDER
     Dosage: QWEEK
     Route: 062
     Dates: start: 20111126, end: 20111129

REACTIONS (5)
  - DRUG INEFFECTIVE FOR UNAPPROVED INDICATION [None]
  - WRONG TECHNIQUE IN DRUG USAGE PROCESS [None]
  - INSOMNIA [None]
  - EMOTIONAL DISORDER [None]
  - PSYCHOMOTOR HYPERACTIVITY [None]
